FAERS Safety Report 9674974 (Version 3)
Quarter: 2013Q4

REPORT INFORMATION
  Report Type: Spontaneous
  Country: US (occurrence: US)
  Receive Date: 20131107
  Receipt Date: 20131122
  Transmission Date: 20140711
  Serious: Yes (Hospitalization, Other)
  Sender: FDA-Public Use
  Company Number: US-ASTELLAS-2013US011425

PATIENT
  Age: 92 Year
  Sex: Male

DRUGS (2)
  1. XTANDI [Suspect]
     Indication: PROSTATE CANCER
     Dosage: 160 MG, UID/QD
     Route: 048
     Dates: end: 20130910
  2. XTANDI [Suspect]
     Dosage: VIA FEEDING TUBE
     Route: 050

REACTIONS (5)
  - Wrong technique in drug usage process [Unknown]
  - Drug dose omission [Unknown]
  - Eating disorder [Recovering/Resolving]
  - Pneumonia aspiration [Recovering/Resolving]
  - Dysphagia [Unknown]
